FAERS Safety Report 19700810 (Version 6)
Quarter: 2022Q3

REPORT INFORMATION
  Report Type: Report from Study
  Country: US (occurrence: US)
  Receive Date: 20210814
  Receipt Date: 20220718
  Transmission Date: 20221027
  Serious: Yes (Hospitalization, Other)
  Sender: FDA-Public Use
  Company Number: NVSC2021US181510

PATIENT
  Age: 64 Year
  Sex: Female

DRUGS (1)
  1. ENTRESTO [Suspect]
     Active Substance: SACUBITRIL\VALSARTAN
     Indication: Product used for unknown indication
     Dosage: UNK UNK, BID
     Route: 065
     Dates: start: 20210722

REACTIONS (16)
  - Coronary artery occlusion [Not Recovered/Not Resolved]
  - Cardiac failure [Recovering/Resolving]
  - Swelling [Recovering/Resolving]
  - Chest pain [Recovering/Resolving]
  - Amnesia [Recovering/Resolving]
  - Weight decreased [Unknown]
  - Head injury [Recovering/Resolving]
  - Fall [Recovering/Resolving]
  - Weight increased [Unknown]
  - Heart rate increased [Recovering/Resolving]
  - Neck pain [Recovered/Resolved]
  - Eye contusion [Recovering/Resolving]
  - Fluid retention [Unknown]
  - Fatigue [Recovered/Resolved]
  - Dizziness [Recovering/Resolving]
  - Cough [Unknown]

NARRATIVE: CASE EVENT DATE: 20210701
